FAERS Safety Report 25470947 (Version 1)
Quarter: 2025Q2

REPORT INFORMATION
  Report Type: Report from Study
  Country: US (occurrence: US)
  Receive Date: 20250624
  Receipt Date: 20250624
  Transmission Date: 20250717
  Serious: No
  Sender: SUNOVION
  Company Number: US-SUMITOMO PHARMA SWITZERLAND GMBH-2025SPA006773

PATIENT

DRUGS (3)
  1. ORGOVYX [Suspect]
     Active Substance: RELUGOLIX
     Indication: Prostate cancer
     Route: 048
     Dates: start: 202503, end: 202503
  2. ORGOVYX [Suspect]
     Active Substance: RELUGOLIX
     Dosage: 120 MG, QD..TAKEN PRIOR TO BIOLOGICS
     Route: 048
     Dates: start: 202503
  3. ORGOVYX [Suspect]
     Active Substance: RELUGOLIX
     Dosage: 120 MG, QD...STARTED WITH BIOLOGICS
     Route: 048
     Dates: start: 20250416

REACTIONS (7)
  - Brain fog [Unknown]
  - Muscle spasms [Unknown]
  - Muscle atrophy [Unknown]
  - Weight abnormal [Unknown]
  - Taste disorder [Unknown]
  - Asthenia [Unknown]
  - Hot flush [Unknown]
